FAERS Safety Report 24241163 (Version 2)
Quarter: 2025Q2

REPORT INFORMATION
  Report Type: Spontaneous
  Country: BR (occurrence: BR)
  Receive Date: 20240823
  Receipt Date: 20250512
  Transmission Date: 20250716
  Serious: Yes (Other)
  Sender: CIPLA
  Company Number: BR-CIPLA LTD.-2024BR08997

PATIENT

DRUGS (3)
  1. BLEOMYCIN SULFATE [Suspect]
     Active Substance: BLEOMYCIN SULFATE
     Indication: Acute megakaryocytic leukaemia
     Route: 065
     Dates: start: 2022
  2. ETOPOSIDE [Suspect]
     Active Substance: ETOPOSIDE
     Indication: Acute megakaryocytic leukaemia
     Route: 065
  3. CISPLATIN [Suspect]
     Active Substance: CISPLATIN
     Indication: Acute megakaryocytic leukaemia
     Route: 065

REACTIONS (2)
  - Leukopenia [Recovering/Resolving]
  - Candida infection [Unknown]
